FAERS Safety Report 5532395-X (Version None)
Quarter: 2007Q4

REPORT INFORMATION
  Report Type: 
  Country: None (occurrence: None)
  Receive Date: 20071203
  Receipt Date: 20071120
  Transmission Date: 20080405
  Serious: Yes (Death, Hospitalization)
  Sender: FDA-Public Use
  Company Number: DK-AMGEN-US254578

PATIENT
  Sex: Female

DRUGS (6)
  1. ENBREL [Suspect]
     Indication: RHEUMATOID ARTHRITIS
     Dosage: STANDARD DOSIS
     Route: 058
     Dates: start: 20060105, end: 20060222
  2. REMICADE [Suspect]
     Indication: RHEUMATOID ARTHRITIS
     Route: 042
     Dates: start: 20060323, end: 20070322
  3. MABTHERA [Suspect]
     Indication: RHEUMATOID ARTHRITIS
     Dosage: 1000 MG, DOSE FREQUENCY UNKNOWN
     Route: 042
     Dates: start: 20070524, end: 20070820
  4. HUMIRA [Suspect]
     Indication: RHEUMATOID ARTHRITIS
     Dosage: STANDARD DOSIS
     Route: 058
     Dates: start: 20050810, end: 20051013
  5. METHOTREXATE [Concomitant]
     Dosage: ONE DOSE PER ONE WEEK
     Route: 048
  6. SALAZOPYRIN [Concomitant]
     Dosage: ONE DOSE PER ONE DAY
     Route: 048

REACTIONS (2)
  - ABDOMINAL NEOPLASM [None]
  - NEOPLASM MALIGNANT [None]
